FAERS Safety Report 15017663 (Version 2)
Quarter: 2018Q3

REPORT INFORMATION
  Report Type: Spontaneous
  Country: JP (occurrence: JP)
  Receive Date: 20180615
  Receipt Date: 20180817
  Transmission Date: 20181010
  Serious: Yes (Hospitalization)
  Sender: FDA-Public Use
  Company Number: JP-JNJFOC-20180618515

PATIENT
  Sex: Male

DRUGS (4)
  1. PENTASA [Concomitant]
     Active Substance: MESALAMINE
     Dosage: 6 TABLETS
     Route: 048
  2. REMICADE [Suspect]
     Active Substance: INFLIXIMAB
     Indication: COLITIS ULCERATIVE
     Dosage: 1 DOSE ON 02?DEC?2011
     Route: 042
     Dates: start: 20110819
  3. ISONIAZID. [Concomitant]
     Active Substance: ISONIAZID
     Dosage: 3 TABLETS
     Route: 048
     Dates: start: 20111202, end: 20120121
  4. PYDOXAL [Concomitant]
     Active Substance: PYRIDOXAL
     Dosage: 3 TABLETS
     Route: 048
     Dates: start: 20111202, end: 20120121

REACTIONS (1)
  - Atypical mycobacterial infection [Recovering/Resolving]

NARRATIVE: CASE EVENT DATE: 201112
